FAERS Safety Report 9621048 (Version 1)
Quarter: 2013Q4

REPORT INFORMATION
  Report Type: Spontaneous
  Country: FI (occurrence: FI)
  Receive Date: 20131015
  Receipt Date: 20131015
  Transmission Date: 20140711
  Serious: Yes (Hospitalization)
  Sender: FDA-Public Use
  Company Number: PHHY2013FI114250

PATIENT
  Age: 69 Year
  Sex: Female

DRUGS (10)
  1. STALEVO [Suspect]
     Indication: PARKINSON^S DISEASE
     Dosage: 1 DF, TID (200/50/12.5 MG)
     Route: 048
     Dates: start: 20120914
  2. STALEVO [Suspect]
     Dosage: 1 DF, TID (DOSE INCREASED DURING 03 WEEKS UNTIL 200/50/25 MG)
     Route: 048
     Dates: start: 201212
  3. STALEVO [Suspect]
     Dosage: STALEVO WAS DECREASED INTO HALF
     Dates: end: 20130211
  4. LITO [Concomitant]
     Indication: BIPOLAR DISORDER
     Dosage: 300 MG, BID (TOTAL OF 600 MG IN 1 DAY)
     Route: 048
     Dates: end: 20130128
  5. SOMAC [Concomitant]
     Dosage: 40 MG, QD
     Route: 048
  6. NITRO [Concomitant]
     Dosage: 0.5 MG, PRN
     Route: 048
  7. LINATIL [Concomitant]
     Indication: HYPERTONIA
     Dosage: 10 MG, QD
     Route: 048
  8. THYROXIN [Concomitant]
     Indication: POST PROCEDURAL HYPOTHYROIDISM
     Dosage: 0.1 MG, QW4
     Route: 048
  9. THYROXIN [Concomitant]
     Dosage: 0.05 MG, QW3
     Route: 048
  10. MOVICOL PLAIN [Concomitant]
     Indication: CONSTIPATION
     Dosage: 1 DF, QD
     Route: 048

REACTIONS (2)
  - Bipolar disorder [Recovered/Resolved]
  - Mania [Recovered/Resolved]
